FAERS Safety Report 10975289 (Version 2)
Quarter: 2017Q3

REPORT INFORMATION
  Report Type: Spontaneous
  Country: JP (occurrence: JP)
  Receive Date: 20150401
  Receipt Date: 20170711
  Transmission Date: 20171127
  Serious: Yes (Death, Other)
  Sender: FDA-Public Use
  Company Number: JP-BAYER-2013-100741

PATIENT
  Age: 75 Year
  Sex: Female
  Weight: 41.72 kg

DRUGS (5)
  1. STIVARGA [Suspect]
     Active Substance: REGORAFENIB
     Indication: RECTAL CANCER
     Dosage: 160 MG, QD (FOR 3 WEEKS AND OFF FOR 1 WEEK)
     Route: 048
     Dates: start: 20130819, end: 20130826
  2. MICARDIS [Concomitant]
     Active Substance: TELMISARTAN
     Dosage: 40 MG, OM
     Route: 048
     Dates: start: 20130807, end: 20131225
  3. PARIET [Concomitant]
     Active Substance: RABEPRAZOLE SODIUM
     Dosage: 10 MG, QD
     Route: 048
     Dates: start: 20121020, end: 20131225
  4. MAGMITT [Concomitant]
     Active Substance: MAGNESIUM OXIDE
     Dosage: 330 MG, TID
     Route: 048
     Dates: start: 20121020, end: 20131225
  5. ADALAT CC [Concomitant]
     Active Substance: NIFEDIPINE
     Dosage: 20 MG, DAILY
     Route: 048
     Dates: start: 20130814, end: 20130819

REACTIONS (9)
  - Abdominal injury [Fatal]
  - Alanine aminotransferase increased [Recovering/Resolving]
  - Oral discomfort [Recovering/Resolving]
  - Haematuria [Recovering/Resolving]
  - Female genital tract fistula [Fatal]
  - Aspartate aminotransferase increased [Recovering/Resolving]
  - Blood pressure increased [Recovering/Resolving]
  - Rectal cancer [Fatal]
  - Hot flush [Recovering/Resolving]

NARRATIVE: CASE EVENT DATE: 20130819
